FAERS Safety Report 9533631 (Version 1)
Quarter: 2013Q1

REPORT INFORMATION
  Report Type: Spontaneous
  Country: US (occurrence: None)
  Receive Date: 20130318
  Receipt Date: 20130318
  Transmission Date: 20140127
  Serious: Yes (Other)
  Sender: FDA-Public Use
  Company Number: 2012SP033916

PATIENT
  Sex: 0

DRUGS (2)
  1. PEGINTRON (PEGINTERFERON ALFA-2B) POWDER FOR INJECTION [Suspect]
     Indication: HEPATITIS C
  2. MK-8908 (RIBAVIRIN) (CAPSULE) [Suspect]

REACTIONS (1)
  - Systemic lupus erythematosus [None]
